FAERS Safety Report 23787685 (Version 54)
Quarter: 2025Q3

REPORT INFORMATION
  Report Type: Report from Study
  Country: CO (occurrence: CO)
  Receive Date: 20240426
  Receipt Date: 20250923
  Transmission Date: 20251020
  Serious: Yes (Hospitalization, Other)
  Sender: TAKEDA
  Company Number: CO-TAKEDA-2023TUS032229

PATIENT
  Age: 23 Year
  Sex: Male
  Weight: 39 kg

DRUGS (11)
  1. IDURSULFASE [Suspect]
     Active Substance: IDURSULFASE
     Indication: Mucopolysaccharidosis II
     Dosage: 18 MILLIGRAM, 1/WEEK
  2. IDURSULFASE [Suspect]
     Active Substance: IDURSULFASE
     Dosage: 18 MILLIGRAM, 1/WEEK
  3. BISOPROLOL [Suspect]
     Active Substance: BISOPROLOL
     Indication: Product used for unknown indication
  4. SPIRONOLACTONE [Suspect]
     Active Substance: SPIRONOLACTONE
     Indication: Product used for unknown indication
  5. VALSARTAN [Concomitant]
     Active Substance: VALSARTAN
  6. ASPIRIN [Concomitant]
     Active Substance: ASPIRIN
  7. GLYCOPYRRONIUM\INDACATEROL [Concomitant]
     Active Substance: GLYCOPYRRONIUM\INDACATEROL
  8. ASPIRIN [Concomitant]
     Active Substance: ASPIRIN
  9. LEVETIRACETAM [Concomitant]
     Active Substance: LEVETIRACETAM
  10. LAMOTRIGINE [Concomitant]
     Active Substance: LAMOTRIGINE
  11. INDACATEROL [Concomitant]
     Active Substance: INDACATEROL

REACTIONS (50)
  - Neurological symptom [Not Recovered/Not Resolved]
  - Myxomatous mitral valve degeneration [Unknown]
  - Aortic valve sclerosis [Unknown]
  - Loss of consciousness [Recovered/Resolved]
  - Irritability [Not Recovered/Not Resolved]
  - Seizure [Recovered/Resolved]
  - Vomiting [Not Recovered/Not Resolved]
  - Weight increased [Unknown]
  - Weight decreased [Unknown]
  - Asthenia [Recovering/Resolving]
  - Fall [Unknown]
  - Joint injury [Unknown]
  - Limb injury [Unknown]
  - Pain [Unknown]
  - Treatment noncompliance [Unknown]
  - Malaise [Recovered/Resolved]
  - Pallor [Recovered/Resolved]
  - General physical health deterioration [Recovered/Resolved]
  - Hyperhidrosis [Recovered/Resolved]
  - Skin discolouration [Recovered/Resolved]
  - Parosmia [Unknown]
  - Left ventricular hypertrophy [Unknown]
  - Left ventricular dysfunction [Unknown]
  - Mitral valve prolapse [Unknown]
  - Aortic valve stenosis [Unknown]
  - Tongue discolouration [Recovered/Resolved]
  - Skin odour abnormal [Recovered/Resolved]
  - Musculoskeletal stiffness [Recovered/Resolved]
  - Amnesia [Recovered/Resolved]
  - Poor venous access [Recovered/Resolved]
  - Skin irritation [Not Recovered/Not Resolved]
  - Face injury [Unknown]
  - Somnolence [Not Recovered/Not Resolved]
  - Anal incontinence [Recovered/Resolved]
  - Muscular weakness [Not Recovered/Not Resolved]
  - Product distribution issue [Unknown]
  - Incorrect dose administered [Unknown]
  - Product prescribing error [Unknown]
  - Product dose omission issue [Unknown]
  - Circumstance or information capable of leading to medication error [Recovered/Resolved]
  - Influenza [Recovering/Resolving]
  - Secretion discharge [Recovering/Resolving]
  - Insurance issue [Unknown]
  - Product use issue [Unknown]
  - Cough [Recovering/Resolving]
  - Dizziness [Recovering/Resolving]
  - Dyspnoea [Recovered/Resolved]
  - Headache [Recovering/Resolving]
  - Nausea [Recovered/Resolved]
  - Erythema [Not Recovered/Not Resolved]

NARRATIVE: CASE EVENT DATE: 20221229
